FAERS Safety Report 21733281 (Version 1)
Quarter: 2022Q4

REPORT INFORMATION
  Report Type: Other
  Country: AU (occurrence: None)
  Receive Date: 20221215
  Receipt Date: 20221215
  Transmission Date: 20230113
  Serious: Yes (Other)
  Sender: FDA-Public Use
  Company Number: AU-ROCHE-2966176

PATIENT
  Age: 54 Year
  Sex: Male

DRUGS (3)
  1. ZELBORAF [Suspect]
     Active Substance: VEMURAFENIB
     Indication: Langerhans^ cell histiocytosis
     Dosage: 2-3 TABLET
     Route: 048
  2. ZELBORAF [Suspect]
     Active Substance: VEMURAFENIB
     Indication: Erdheim-Chester disease
     Route: 048
     Dates: start: 20211024, end: 20220930
  3. DUTASTERIDE\TAMSULOSIN [Concomitant]
     Active Substance: DUTASTERIDE\TAMSULOSIN

REACTIONS (4)
  - Squamous cell carcinoma of skin [Recovered/Resolved]
  - Off label use [Unknown]
  - Paraesthesia [Unknown]
  - Tinnitus [Unknown]

NARRATIVE: CASE EVENT DATE: 20220801
